FAERS Safety Report 5397141-1 (Version None)
Quarter: 2007Q3

REPORT INFORMATION
  Report Type: 
  Country: None (occurrence: None)
  Receive Date: 20070723
  Receipt Date: 20070706
  Transmission Date: 20080115
  Serious: Yes (Other)
  Sender: FDA-Public Use
  Company Number: 014477

PATIENT
  Sex: Male

DRUGS (1)
  1. CLARAVIS [Suspect]
     Indication: GLIOBLASTOMA
     Dosage: ORAL
     Route: 048
     Dates: start: 20070208, end: 20070401

REACTIONS (2)
  - DISEASE PROGRESSION [None]
  - GLIOBLASTOMA [None]
